FAERS Safety Report 9586509 (Version 1)
Quarter: 2013Q3

REPORT INFORMATION
  Report Type: Spontaneous
  Country: IN (occurrence: None)
  Receive Date: 20130926
  Receipt Date: 20130926
  Transmission Date: 20140515
  Serious: Yes (Other)
  Sender: FDA-Public Use
  Company Number: 2013-01441

PATIENT
  Age: 26 Year
  Sex: Female
  Weight: 36 kg

DRUGS (2)
  1. VALPROATE [Suspect]
     Indication: GRAND MAL CONVULSION
     Dosage: (300 MG, 2 IN 1 D)
  2. THYROXIN (TABLETS) [Concomitant]

REACTIONS (1)
  - Alopecia [None]
